FAERS Safety Report 10682470 (Version 1)
Quarter: 2014Q4

REPORT INFORMATION
  Report Type: Spontaneous
  Country: US (occurrence: None)
  Receive Date: 20141229
  Receipt Date: 20141229
  Transmission Date: 20150529
  Serious: Yes (Other)
  Sender: FDA-Public Use
  Company Number: None

PATIENT
  Age: 51 Year
  Sex: Female
  Weight: 58.97 kg

DRUGS (1)
  1. LEXISCAN [Suspect]
     Active Substance: REGADENOSON
     Indication: CARDIAC STRESS TEST
     Route: 042
     Dates: start: 20141223, end: 20141223

REACTIONS (11)
  - Head discomfort [None]
  - Presyncope [None]
  - Feeling abnormal [None]
  - Tremor [None]
  - Dyspnoea [None]
  - Palpitations [None]
  - Feeling cold [None]
  - Chest discomfort [None]
  - Muscular weakness [None]
  - Chest pain [None]
  - Abdominal pain upper [None]

NARRATIVE: CASE EVENT DATE: 20141223
